FAERS Safety Report 5417415-5 (Version None)
Quarter: 2007Q3

REPORT INFORMATION
  Report Type: 
  Country: None (occurrence: None)
  Receive Date: 20070718
  Receipt Date: 20070315
  Transmission Date: 20080115
  Serious: Yes (Hospitalization, Other)
  Sender: FDA-Public Use
  Company Number: 2005098344

PATIENT
  Age: 78 Year
  Sex: Female
  Weight: 63.5 kg

DRUGS (12)
  1. CELEBREX [Suspect]
     Indication: ARTHRITIS
     Dosage: 400 MG (200 MG, 2 IN 1 D)
     Dates: start: 20021024
  2. IMIPRAMINE [Concomitant]
  3. LOVASTATIN [Concomitant]
  4. METOPROLOL SUCCINATE [Concomitant]
  5. LEVOTHYROXINE SODIUM [Concomitant]
  6. GUIAFED PD (PSEUDOEPHEDRINE SODIUM) [Concomitant]
  7. DETROL LA [Concomitant]
  8. PROTONIX [Concomitant]
  9. LANOXIN [Concomitant]
  10. ASTELIN [Concomitant]
  11. FOSAMAX [Concomitant]
  12. LASIX [Concomitant]

REACTIONS (2)
  - CORONARY ARTERY OCCLUSION [None]
  - MYOCARDIAL INFARCTION [None]
